FAERS Safety Report 5986396-8 (Version None)
Quarter: 2008Q4

REPORT INFORMATION
  Report Type: 
  Country: None (occurrence: None)
  Receive Date: 20081203
  Receipt Date: 20081125
  Transmission Date: 20090506
  Serious: Yes (Other)
  Sender: FDA-Public Use
  Company Number: 2008SP022475

PATIENT
  Age: 30 Year
  Sex: Female

DRUGS (6)
  1. TEMODAL [Suspect]
     Indication: ASTROCYTOMA
     Dosage: 100 MG;	PO; 300 MG;QD;PO; 100 MG;QD;PO
     Route: 048
     Dates: start: 20040501, end: 20040601
  2. TEMODAL [Suspect]
     Indication: ASTROCYTOMA
     Dosage: 100 MG;	PO; 300 MG;QD;PO; 100 MG;QD;PO
     Route: 048
     Dates: start: 20040901, end: 20050401
  3. TEMODAL [Suspect]
     Indication: ASTROCYTOMA
     Dosage: 100 MG;	PO; 300 MG;QD;PO; 100 MG;QD;PO
     Route: 048
     Dates: start: 20051101, end: 20060201
  4. TEMODAL [Suspect]
     Indication: ASTROCYTOMA
     Dosage: 100 MG;	PO; 300 MG;QD;PO; 100 MG;QD;PO
     Route: 048
     Dates: start: 20070201, end: 20070401
  5. TEMODAL [Suspect]
     Indication: ASTROCYTOMA
     Dosage: 100 MG;	PO; 300 MG;QD;PO; 100 MG;QD;PO
     Route: 048
     Dates: start: 20070401, end: 20080901
  6. CELEBREX [Concomitant]

REACTIONS (1)
  - OSTEONECROSIS [None]
